FAERS Safety Report 6038983-9 (Version None)
Quarter: 2009Q1

REPORT INFORMATION
  Report Type: 
  Country: None (occurrence: None)
  Receive Date: 20090115
  Receipt Date: 20090107
  Transmission Date: 20090719
  Serious: Yes (Hospitalization)
  Sender: FDA-Public Use
  Company Number: JP-MERCK-0812USA02685

PATIENT
  Age: 71 Year
  Sex: Male

DRUGS (11)
  1. SINGULAIR [Suspect]
     Indication: RHINITIS ALLERGIC
     Route: 048
     Dates: start: 20080924, end: 20081106
  2. SINGULAIR [Suspect]
     Route: 048
     Dates: start: 20080206, end: 20080305
  3. RULID [Suspect]
     Indication: CHRONIC SINUSITIS
     Route: 048
     Dates: start: 20080924, end: 20081106
  4. HERBS (UNSPECIFIED) [Suspect]
     Indication: CHRONIC SINUSITIS
     Route: 048
     Dates: start: 20080924, end: 20081106
  5. HERBS (UNSPECIFIED) [Suspect]
     Route: 048
     Dates: start: 20071125, end: 20080129
  6. HERBS (UNSPECIFIED) [Suspect]
     Route: 048
     Dates: start: 20080206, end: 20080305
  7. AMARYL [Concomitant]
     Indication: DIABETES MELLITUS
     Route: 048
     Dates: start: 20030101
  8. METFORMIN HYDROCHLORIDE [Concomitant]
     Indication: DIABETES MELLITUS
     Route: 048
     Dates: start: 20030101, end: 20080904
  9. METFORMIN HCL [Concomitant]
     Indication: DIABETES MELLITUS
     Route: 048
     Dates: start: 20080904, end: 20081106
  10. ALLEGRA [Concomitant]
     Route: 048
     Dates: start: 20071125, end: 20080129
  11. ALLEGRA [Concomitant]
     Route: 048
     Dates: start: 20080206, end: 20080305

REACTIONS (1)
  - LIVER DISORDER [None]
